FAERS Safety Report 25830555 (Version 2)
Quarter: 2025Q4

REPORT INFORMATION
  Report Type: Spontaneous
  Country: GB (occurrence: GB)
  Receive Date: 20250922
  Receipt Date: 20251117
  Transmission Date: 20260118
  Serious: Yes (Other)
  Sender: BAXTER
  Company Number: GB-JNJFOC-20250827451

PATIENT
  Age: 72 Year
  Sex: Female

DRUGS (9)
  1. FUROSEMIDE [Suspect]
     Active Substance: FUROSEMIDE
     Indication: Product used for unknown indication
     Dosage: 1 EACH MORNING
     Route: 065
  2. FENTANYL [Suspect]
     Active Substance: FENTANYL
     Indication: Pain
     Dosage: 150 MG
     Route: 062
     Dates: end: 20250521
  3. FENTANYL [Suspect]
     Active Substance: FENTANYL
     Dosage: 20 MG, SHORTEC CAPSULE TWICE DAILY, WISH TO CHANGE 10 MG SHORTS + 15 MG SHORTEC TWICE DAILY
     Route: 062
     Dates: start: 20250531, end: 20250531
  4. BACLOFEN [Suspect]
     Active Substance: BACLOFEN
     Indication: Product used for unknown indication
     Dosage: 10 MG (EVERY 0 DAY)
     Route: 065
     Dates: start: 198209
  5. LORAZEPAM [Suspect]
     Active Substance: LORAZEPAM
     Indication: Product used for unknown indication
     Dosage: 1 AT NIGHT
     Route: 065
  6. VITAMIN B COMPLEX [Suspect]
     Active Substance: CYANOCOBALAMIN\DEXPANTHENOL\NIACINAMIDE\PYRIDOXINE HYDROCHLORIDE\RIBOFLAVIN 5^-PHOSPHATE SODIUM\THIA
     Indication: Product used for unknown indication
     Dosage: 1 DAILY
     Route: 065
  7. VITAMIN D2 [Suspect]
     Active Substance: ERGOCALCIFEROL
     Indication: Product used for unknown indication
     Dosage: 1 DAILY
     Route: 065
  8. VITAMIN C [Suspect]
     Active Substance: ASCORBIC ACID
     Indication: Product used for unknown indication
     Dosage: 1 DAILY
     Route: 065
  9. VITAMIN E [Suspect]
     Active Substance: .ALPHA.-TOCOPHEROL
     Indication: Product used for unknown indication
     Dosage: 1 DAILY
     Route: 065

REACTIONS (3)
  - Surgery [Unknown]
  - Product availability issue [Unknown]
  - Product dose omission issue [Unknown]
